FAERS Safety Report 9195720 (Version 1)
Quarter: 2013Q1

REPORT INFORMATION
  Report Type: Spontaneous
  Country: US (occurrence: None)
  Receive Date: 20130325
  Receipt Date: 20130325
  Transmission Date: 20140127
  Serious: Yes (Disabling)
  Sender: FDA-Public Use
  Company Number: None

PATIENT
  Age: 56 Year
  Sex: Male
  Weight: 62.6 kg

DRUGS (1)
  1. BOTOX [Suspect]
     Indication: BLEPHAROSPASM
     Dates: start: 201102

REACTIONS (12)
  - Dyspnoea [None]
  - Thinking abnormal [None]
  - Ophthalmoplegia [None]
  - Activities of daily living impaired [None]
  - Toxicity to various agents [None]
  - Lymphadenopathy [None]
  - Pharyngeal disorder [None]
  - Cough [None]
  - Vomiting [None]
  - Choking [None]
  - Arthralgia [None]
  - Treatment failure [None]
